FAERS Safety Report 7110285-9 (Version None)
Quarter: 2010Q4

REPORT INFORMATION
  Report Type: 
  Country: None (occurrence: None)
  Receive Date: 20101117
  Receipt Date: 20101117
  Transmission Date: 20110411
  Serious: Yes (Other)
  Sender: FDA-Public Use
  Company Number: None

PATIENT
  Age: 55 Year
  Sex: Female
  Weight: 54.4316 kg

DRUGS (1)
  1. VOLTAREN [Suspect]
     Indication: SYNOVIAL CYST
     Dosage: TOLD TO USE DOSING CARD - USED LESS SINCE IT WAS A SMALL AREA 3 X'S A DAY ONCE ON WED. BEFORE SAT TH
     Dates: start: 20101030

REACTIONS (3)
  - ERYTHEMA [None]
  - OEDEMA PERIPHERAL [None]
  - PAIN IN EXTREMITY [None]
